FAERS Safety Report 5007444-8 (Version None)
Quarter: 2006Q2

REPORT INFORMATION
  Report Type: 
  Country: None (occurrence: None)
  Receive Date: 20060519
  Receipt Date: 20060519
  Transmission Date: 20061013
  Serious: Yes (Death)
  Sender: FDA-Public Use
  Company Number: None

PATIENT
  Sex: Male
  Weight: 66.6788 kg

DRUGS (8)
  1. REVLIMID [Suspect]
     Indication: PROSTATE CANCER
     Dosage: 10 MG   QD   PO
     Route: 048
     Dates: start: 20060110, end: 20060505
  2. PREDNISONE [Concomitant]
  3. LUPRON [Concomitant]
  4. COLACE [Concomitant]
  5. ASPIRIN [Concomitant]
  6. TYLENOL (GELTAB) [Concomitant]
  7. CENTRUM [Concomitant]
  8. FENTANYL [Concomitant]

REACTIONS (3)
  - DISEASE PROGRESSION [None]
  - GENERAL PHYSICAL HEALTH DETERIORATION [None]
  - PROSTATE CANCER [None]
